FAERS Safety Report 10459772 (Version 2)
Quarter: 2014Q4

REPORT INFORMATION
  Report Type: Spontaneous
  Country: JP (occurrence: JP)
  Receive Date: 20140917
  Receipt Date: 20141007
  Transmission Date: 20150528
  Serious: Yes (Hospitalization)
  Sender: FDA-Public Use
  Company Number: JP-SA-2014SA120940

PATIENT
  Age: 2 Month
  Sex: Male

DRUGS (12)
  1. CEPHALOSPORINS AND RELATED SUBSTANCES [Suspect]
     Active Substance: UNSPECIFIED INGREDIENT
     Route: 065
  2. SILDENAFIL. [Concomitant]
     Active Substance: SILDENAFIL
     Indication: CARDIAC FAILURE
     Route: 048
  3. URSODEOXYCHOLIC  ACID [Concomitant]
     Active Substance: URSODIOL
  4. PROSTAGLANDIN E1 [Concomitant]
     Active Substance: ALPROSTADIL
     Indication: CARDIAC FAILURE
  5. CARDIAC STIMULANTS [Concomitant]
     Indication: CARDIAC FAILURE
  6. FUROSEMIDE. [Suspect]
     Active Substance: FUROSEMIDE
     Route: 065
  7. WARFARIN [Concomitant]
     Active Substance: WARFARIN
     Indication: CARDIAC FAILURE
     Route: 048
  8. FUROSEMIDE. [Suspect]
     Active Substance: FUROSEMIDE
     Route: 048
  9. PIMOBENDAN [Concomitant]
     Active Substance: PIMOBENDAN
     Indication: CARDIAC FAILURE
     Route: 048
  10. CAPTOPRIL. [Concomitant]
     Active Substance: CAPTOPRIL
     Indication: CARDIAC FAILURE
     Route: 048
  11. SPIRONOLACTONE. [Concomitant]
     Active Substance: SPIRONOLACTONE
     Indication: CARDIAC FAILURE
     Route: 048
  12. GLYCYRRHIZINATE POTASSIUM [Concomitant]
     Active Substance: GLYCYRRHIZIN

REACTIONS (15)
  - Aspartate aminotransferase increased [Recovered/Resolved]
  - Hepatic function abnormal [Recovered/Resolved]
  - Bilirubin conjugated increased [Recovered/Resolved]
  - Cholelithiasis [Recovered/Resolved]
  - Jaundice cholestatic [Recovered/Resolved]
  - Faeces pale [Recovered/Resolved]
  - Vomiting [Recovered/Resolved]
  - Blood bilirubin increased [Recovered/Resolved]
  - Total bile acids increased [Recovered/Resolved]
  - Condition aggravated [Recovered/Resolved]
  - Liver palpable [Recovered/Resolved]
  - Bile duct stone [Recovered/Resolved]
  - International normalised ratio increased [Recovered/Resolved]
  - Alanine aminotransferase increased [Recovered/Resolved]
  - Gamma-glutamyltransferase increased [Recovered/Resolved]
